FAERS Safety Report 24750764 (Version 2)
Quarter: 2025Q1

REPORT INFORMATION
  Report Type: Spontaneous
  Country: JP (occurrence: JP)
  Receive Date: 20241218
  Receipt Date: 20250102
  Transmission Date: 20250409
  Serious: No
  Sender: SANOFI AVENTIS
  Company Number: JP-SA-2024SA370692

PATIENT
  Age: 39 Year
  Sex: Male

DRUGS (5)
  1. MABCAMPATH [Suspect]
     Active Substance: ALEMTUZUMAB
     Indication: Chronic lymphocytic leukaemia
     Dosage: 3 MG, QD
     Route: 041
     Dates: start: 20241211, end: 20241213
  2. MABCAMPATH [Suspect]
     Active Substance: ALEMTUZUMAB
     Route: 041
     Dates: start: 20241214, end: 20241215
  3. MABCAMPATH [Suspect]
     Active Substance: ALEMTUZUMAB
     Route: 041
     Dates: start: 20241217
  4. MELOXICAM [Concomitant]
     Active Substance: MELOXICAM
     Indication: Product used for unknown indication
     Route: 065
  5. VALACYCLOVIR HYDROCHLORIDE [Concomitant]
     Active Substance: VALACYCLOVIR HYDROCHLORIDE
     Indication: Product used for unknown indication
     Route: 065

REACTIONS (3)
  - Full blood count decreased [Recovered/Resolved]
  - Infusion related reaction [Recovered/Resolved]
  - Pyrexia [Recovered/Resolved]

NARRATIVE: CASE EVENT DATE: 20241215
